FAERS Safety Report 5763979-1 (Version None)
Quarter: 2008Q2

REPORT INFORMATION
  Report Type: 
  Country: None (occurrence: None)
  Receive Date: 20080609
  Receipt Date: 20080326
  Transmission Date: 20081010
  Serious: No
  Sender: FDA-Public Use
  Company Number: 002#2#2008-00150

PATIENT
  Age: 78 Year
  Sex: Male
  Weight: 100 kg

DRUGS (14)
  1. NEUPRO [Suspect]
     Indication: RESTLESS LEGS SYNDROME
     Dosage: 2MG/24H, 1 IN 1 D, TRANSDERMAL; 4MG/24H, 1 IN 1 D, TRANSDERMAL
     Route: 062
     Dates: start: 20080322, end: 20080324
  2. NEUPRO [Suspect]
     Indication: RESTLESS LEGS SYNDROME
     Dosage: 2MG/24H, 1 IN 1 D, TRANSDERMAL; 4MG/24H, 1 IN 1 D, TRANSDERMAL
     Route: 062
     Dates: start: 20080325, end: 20080326
  3. PREVACID [Concomitant]
  4. HYDROXYZINE [Concomitant]
  5. SEREVENT [Concomitant]
  6. ALBUTEROL [Concomitant]
  7. COUMADIN [Concomitant]
  8. FOLIC ACID [Concomitant]
  9. PREDNISONE TAB [Concomitant]
  10. SKELAXIN [Concomitant]
  11. GABAPENTIN [Concomitant]
  12. DIOVAN [Concomitant]
  13. TEMAZEPAM [Concomitant]
  14. TYLENOL W/ CODEINE [Concomitant]

REACTIONS (1)
  - OFF LABEL USE [None]
